FAERS Safety Report 4886804-X (Version None)
Quarter: 2006Q1

REPORT INFORMATION
  Report Type: 
  Country: None (occurrence: None)
  Receive Date: 20060119
  Receipt Date: 20060119
  Transmission Date: 20060701
  Serious: Yes (Other)
  Sender: FDA-Public Use
  Company Number: None

PATIENT
  Sex: Female
  Weight: 49.8957 kg

DRUGS (1)
  1. SEPTOCAINE [Suspect]
     Dosage: STANDARD   DENTAL
     Route: 004
     Dates: start: 20060110, end: 20060110

REACTIONS (5)
  - DYSGEUSIA [None]
  - GLOSSODYNIA [None]
  - HYPOAESTHESIA ORAL [None]
  - ORAL DISCOMFORT [None]
  - PARAESTHESIA [None]
